FAERS Safety Report 6122499-5 (Version None)
Quarter: 2009Q1

REPORT INFORMATION
  Report Type: 
  Country: None (occurrence: None)
  Receive Date: 20090318
  Receipt Date: 20090109
  Transmission Date: 20090719
  Serious: No
  Sender: FDA-Public Use
  Company Number: US-ASTRAZENECA-2009UW00807

PATIENT
  Age: 66 Year
  Sex: Female
  Weight: 54.4 kg

DRUGS (10)
  1. SYMBICORT [Suspect]
     Indication: ASTHMA
     Dosage: 160/4.5 MCG, 2 PUFFS TWICE DAILY
     Route: 055
     Dates: start: 20080101
  2. SYMBICORT [Suspect]
     Indication: CHRONIC OBSTRUCTIVE PULMONARY DISEASE
     Dosage: 160/4.5 MCG, 2 PUFFS TWICE DAILY
     Route: 055
     Dates: start: 20080101
  3. SYMBICORT [Suspect]
     Indication: EMPHYSEMA
     Dosage: 160/4.5 MCG, 2 PUFFS TWICE DAILY
     Route: 055
     Dates: start: 20080101
  4. SPIRIVA [Concomitant]
  5. ASPIRIN [Concomitant]
  6. MULTI-VITAMINS [Concomitant]
  7. PYRIDOXINE HCL [Concomitant]
  8. VITAMIN B-12 [Concomitant]
  9. TRACADONE [Concomitant]
     Indication: ANTIDEPRESSANT THERAPY
  10. ALEVE [Concomitant]

REACTIONS (2)
  - DYSPHONIA [None]
  - RHINORRHOEA [None]
